FAERS Safety Report 6781193-8 (Version None)
Quarter: 2010Q2

REPORT INFORMATION
  Report Type: 
  Country: None (occurrence: None)
  Receive Date: 20100621
  Receipt Date: 20100610
  Transmission Date: 20101027
  Serious: Yes (Hospitalization, Other)
  Sender: FDA-Public Use
  Company Number: US-PFIZER INC-2010073333

PATIENT
  Sex: Male

DRUGS (2)
  1. VIAGRA [Suspect]
     Indication: ERECTILE DYSFUNCTION
     Dosage: UNK
     Dates: start: 20061201
  2. ATROPINE SULFATE [Suspect]
     Dosage: UNK
     Dates: start: 20070401, end: 20070401

REACTIONS (8)
  - ERECTION INCREASED [None]
  - ERYTHEMA [None]
  - FEELING HOT [None]
  - HEAT ILLNESS [None]
  - PHOTOSENSITIVITY REACTION [None]
  - POISONING [None]
  - POISONING DELIBERATE [None]
  - SWELLING FACE [None]
